FAERS Safety Report 16761911 (Version 1)
Quarter: 2019Q3

REPORT INFORMATION
  Report Type: Spontaneous
  Country: US (occurrence: US)
  Receive Date: 20190830
  Receipt Date: 20190830
  Transmission Date: 20191005
  Serious: No
  Sender: FDA-Public Use
  Company Number: US-SUNOVION-2019SUN003541

PATIENT

DRUGS (12)
  1. LYRICA [Concomitant]
     Active Substance: PREGABALIN
     Dosage: 100 MG, QD PM
     Route: 065
  2. RESTORIL [Concomitant]
     Active Substance: TEMAZEPAM
     Dosage: 15 MG, QD
     Route: 065
  3. WELLBUTRIN [Concomitant]
     Active Substance: BUPROPION HYDROCHLORIDE
     Dosage: 300 MG, QD AM
     Route: 065
  4. PREDNISOLONE. [Concomitant]
     Active Substance: PREDNISOLONE
     Dosage: 1 GTT, LEFT EYE BID
     Route: 047
  5. LAMICTAL [Concomitant]
     Active Substance: LAMOTRIGINE
     Dosage: 100 MG, QD PM
     Route: 065
  6. OCUVITE [Concomitant]
     Active Substance: VITAMINS
     Dosage: 1 DF, QD
     Route: 048
  7. LATANOPROST. [Concomitant]
     Active Substance: LATANOPROST
     Indication: GLAUCOMA
     Dosage: 1 DROP RIGHT EYE AT BED TIME
     Route: 047
  8. LUNESTA [Suspect]
     Active Substance: ESZOPICLONE
     Dosage: UNK
     Route: 048
  9. GABAPENTIN. [Concomitant]
     Active Substance: GABAPENTIN
     Dosage: UNK
     Route: 065
  10. TRAMADOL. [Concomitant]
     Active Substance: TRAMADOL
     Indication: PAIN
     Dosage: 50 MG (ONE TABLET EVERY 6 HOURS AS NEEDED)
     Route: 065
  11. BRIMONIDINE [Concomitant]
     Active Substance: BRIMONIDINE TARTRATE
     Indication: GLAUCOMA
     Dosage: 1 DROP TO RIGHT EYE 3X DAILY
     Route: 047
  12. DORZOLAMIDE [Concomitant]
     Active Substance: DORZOLAMIDE
     Indication: GLAUCOMA
     Dosage: 1 DROP, BID TO BOTH EYES
     Route: 047

REACTIONS (1)
  - Hypersensitivity [Unknown]
